FAERS Safety Report 7463271-3 (Version None)
Quarter: 2011Q2

REPORT INFORMATION
  Report Type: 
  Country: None (occurrence: None)
  Receive Date: 20110506
  Receipt Date: 20110503
  Transmission Date: 20111010
  Serious: Yes (Hospitalization)
  Sender: FDA-Public Use
  Company Number: IT-ROCHE-775123

PATIENT
  Sex: Male
  Weight: 84 kg

DRUGS (9)
  1. KANRENOL [Concomitant]
     Dosage: FREQUENCY:QD
     Route: 048
  2. CITALOPRAM [Concomitant]
     Indication: DEPRESSION
     Dosage: FREQUENCY:QD
     Route: 048
  3. ENOXAPARIN SODIUM [Concomitant]
     Dosage: DOSE:4000 U
     Route: 058
     Dates: start: 20110502
  4. DEXAMETHASONE [Concomitant]
     Route: 048
  5. AVASTIN [Suspect]
     Route: 042
     Dates: start: 20110421, end: 20110421
  6. LEVETIRACETAM [Concomitant]
     Indication: EPILEPSY
     Route: 048
  7. LANOXIN [Concomitant]
     Indication: PROPHYLAXIS
     Dosage: FREQUENCY:QD
     Route: 048
  8. CALCIUM LEVOFOLINATE [Concomitant]
     Indication: SUPPORTIVE CARE
     Dosage: FREQUENCY:QD
     Route: 048
  9. ENOXAPARIN SODIUM [Concomitant]
     Dosage: DOSE 8000 U
     Route: 058
     Dates: start: 20110215, end: 20110501

REACTIONS (4)
  - TACHYCARDIA [None]
  - SOMNOLENCE [None]
  - HYPOTENSION [None]
  - DIARRHOEA [None]
